FAERS Safety Report 6673186-6 (Version None)
Quarter: 2010Q2

REPORT INFORMATION
  Report Type: 
  Country: None (occurrence: None)
  Receive Date: 20100408
  Receipt Date: 20100324
  Transmission Date: 20101027
  Serious: Yes (Other)
  Sender: FDA-Public Use
  Company Number: US-BAYER-201013402BCC

PATIENT
  Age: 79 Year
  Sex: Female

DRUGS (2)
  1. ASPIRIN [Suspect]
     Indication: STENT PLACEMENT
     Route: 048
  2. PLAVIX [Suspect]
     Indication: STENT PLACEMENT
     Route: 048

REACTIONS (1)
  - MYOCARDIAL INFARCTION [None]
